FAERS Safety Report 5947738-2 (Version None)
Quarter: 2008Q4

REPORT INFORMATION
  Report Type: 
  Country: None (occurrence: None)
  Receive Date: 20081107
  Receipt Date: 20081030
  Transmission Date: 20090506
  Serious: Yes (Hospitalization, Other)
  Sender: FDA-Public Use
  Company Number: 2008SP019059

PATIENT
  Age: 6 Year
  Sex: Male

DRUGS (11)
  1. NOXAFIL [Suspect]
     Indication: HEPATIC INFECTION
     Dosage: 200 MG, QID;
     Dates: start: 20080801
  2. NOXAFIL [Suspect]
     Indication: LUNG INFECTION
     Dosage: 200 MG, QID;
     Dates: start: 20080801
  3. AMPHOTERICIN B [Concomitant]
  4. MERCAPTOPURINE [Concomitant]
  5. MEROPENEM [Concomitant]
  6. NEUPOGEN [Concomitant]
  7. ESKETAMINE [Concomitant]
  8. GABAPENTIN [Concomitant]
  9. CIPROFLOXACIN HCL [Concomitant]
  10. CO-TRIMOXAZOLE [Concomitant]
  11. PARACETAMOL [Concomitant]

REACTIONS (1)
  - TOXIC ENCEPHALOPATHY [None]
